FAERS Safety Report 7513364-7 (Version None)
Quarter: 2011Q2

REPORT INFORMATION
  Report Type: 
  Country: None (occurrence: None)
  Receive Date: 20110531
  Receipt Date: 20110523
  Transmission Date: 20111010
  Serious: Yes (Hospitalization)
  Sender: FDA-Public Use
  Company Number: US-US-EMD SERONO, INC.-7061450

PATIENT
  Sex: Female
  Weight: 88 kg

DRUGS (8)
  1. NUVIGIL [Concomitant]
  2. REBIF [Suspect]
     Indication: MULTIPLE SCLEROSIS
     Route: 058
     Dates: start: 20040616
  3. BACLOFEN [Concomitant]
  4. LAMICTAL [Concomitant]
  5. REBIF [Suspect]
     Route: 058
  6. DEPO-PROVERA [Concomitant]
  7. MOTRIN [Concomitant]
     Indication: PREMEDICATION
  8. ABILIFY [Concomitant]

REACTIONS (12)
  - BLOOD UREA INCREASED [None]
  - HAEMOGLOBIN ABNORMAL [None]
  - COLITIS [None]
  - OESOPHAGEAL DISORDER [None]
  - GAIT DISTURBANCE [None]
  - BLOOD CREATININE INCREASED [None]
  - INJECTION SITE ERYTHEMA [None]
  - DRUG ADMINISTRATION ERROR [None]
  - COLONIC OBSTRUCTION [None]
  - HYPOTENSION [None]
  - BLOOD SODIUM DECREASED [None]
  - INFLUENZA LIKE ILLNESS [None]
